FAERS Safety Report 5645192-1 (Version None)
Quarter: 2008Q1

REPORT INFORMATION
  Report Type: 
  Country: None (occurrence: None)
  Receive Date: 20080229
  Receipt Date: 20080221
  Transmission Date: 20080703
  Serious: Yes (Hospitalization, Other)
  Sender: FDA-Public Use
  Company Number: DE-ABBOTT-08P-062-0437516-00

PATIENT
  Sex: Female
  Weight: 92 kg

DRUGS (3)
  1. HUMIRA [Suspect]
     Indication: RHEUMATOID ARTHRITIS
     Route: 058
     Dates: start: 20061004, end: 20071001
  2. HUMIRA [Suspect]
     Dates: start: 20071001
  3. GLUCOCORTICOIDS [Concomitant]
     Indication: RHEUMATOID ARTHRITIS
     Dosage: NR SYTEMIC

REACTIONS (1)
  - OSTEOARTHRITIS [None]
